FAERS Safety Report 5114852-3 (Version None)
Quarter: 2006Q3

REPORT INFORMATION
  Report Type: 
  Country: None (occurrence: None)
  Receive Date: 20060926
  Receipt Date: 20060727
  Transmission Date: 20061208
  Serious: Yes (Death, Life-Threatening)
  Sender: FDA-Public Use
  Company Number: DE-BAYER-200610986BVD

PATIENT
  Age: 91 Year
  Sex: Female
  Weight: 55 kg

DRUGS (4)
  1. CIPROBAY [Suspect]
     Indication: URINARY TRACT INFECTION
     Route: 048
     Dates: start: 20060404, end: 20060407
  2. IBUPROFEN [Concomitant]
     Indication: PAIN
     Route: 048
     Dates: start: 20060310, end: 20060407
  3. ESCITALOPRAM OXALATE [Concomitant]
     Indication: DEPRESSION
     Route: 048
     Dates: end: 20060407
  4. MADOPAR [Concomitant]
     Indication: PARKINSON'S DISEASE
     Route: 048
     Dates: end: 20060407

REACTIONS (3)
  - PANCREATITIS [None]
  - SEPSIS [None]
  - SHOCK [None]
